FAERS Safety Report 13064949 (Version 1)
Quarter: 2016Q4

REPORT INFORMATION
  Report Type: Spontaneous
  Country: US (occurrence: US)
  Receive Date: 20161223
  Receipt Date: 20161223
  Transmission Date: 20170207
  Serious: No
  Sender: FDA-Public Use
  Company Number: None

PATIENT
  Age: 76 Year
  Sex: Male

DRUGS (1)
  1. DOFETILIDE 250MCG MAYNE PHARMA [Suspect]
     Active Substance: DOFETILIDE
     Route: 048
     Dates: start: 20160927, end: 20161206

REACTIONS (2)
  - Atrial flutter [None]
  - Heart rate increased [None]

NARRATIVE: CASE EVENT DATE: 20161206
